FAERS Safety Report 7316297-4 (Version None)
Quarter: 2011Q1

REPORT INFORMATION
  Report Type: 
  Country: None (occurrence: None)
  Receive Date: 20110225
  Receipt Date: 20110225
  Transmission Date: 20110831
  Serious: Yes (Hospitalization, Other)
  Sender: FDA-Public Use
  Company Number: US-PFIZER INC-2009258081

PATIENT
  Sex: Female
  Weight: 79.365 kg

DRUGS (5)
  1. AMBIEN [Concomitant]
  2. ALPRAZOLAM [Suspect]
     Indication: ANXIETY
     Dosage: 0.5 MG, 3X/DAY
  3. REMERON [Concomitant]
     Dosage: 45 MG, 1X/DAY
  4. RISPERDAL [Concomitant]
     Dosage: 0.25 MG, 1X/DAY
  5. LITHIUM CITRATE [Concomitant]
     Dosage: 300 MG, 1X/DAY

REACTIONS (4)
  - NAUSEA [None]
  - THYROID CANCER [None]
  - HEADACHE [None]
  - PRODUCT SUBSTITUTION ISSUE [None]
